FAERS Safety Report 5804033-X (Version None)
Quarter: 2008Q3

REPORT INFORMATION
  Report Type: 
  Country: None (occurrence: None)
  Receive Date: 20080709
  Receipt Date: 20080627
  Transmission Date: 20090109
  Serious: Yes (Other)
  Sender: FDA-Public Use
  Company Number: BR-RANBAXY-2008R5-16197

PATIENT

DRUGS (2)
  1. ISOTRETINOINA [Suspect]
     Indication: ACNE
     Dosage: 20 MG, SINGLE
     Route: 048
     Dates: start: 20080427
  2. LACRIMA PLUS [Suspect]
     Indication: DRUG USE FOR UNKNOWN INDICATION
     Route: 047

REACTIONS (7)
  - CHROMATURIA [None]
  - DIZZINESS [None]
  - EYE PAIN [None]
  - FATIGUE [None]
  - OCULAR ICTERUS [None]
  - PHOTOPHOBIA [None]
  - VISUAL IMPAIRMENT [None]
